FAERS Safety Report 9787225 (Version 2)
Quarter: 2014Q1

REPORT INFORMATION
  Report Type: Spontaneous
  Country: IL (occurrence: IL)
  Receive Date: 20131229
  Receipt Date: 20140312
  Transmission Date: 20141002
  Serious: Yes (Other)
  Sender: FDA-Public Use
  Company Number: IL-009507513-1312ISR011155

PATIENT
  Sex: 0

DRUGS (4)
  1. VICTRELIS [Suspect]
     Indication: HEPATITIS C
     Dosage: UNK
     Route: 048
  2. PEGASYS [Suspect]
     Indication: HEPATITIS C
  3. COPEGUS [Suspect]
     Indication: HEPATITIS C
  4. INTERFERON (UNSPECIFIED) [Suspect]
     Dosage: UNK

REACTIONS (1)
  - Completed suicide [Unknown]
